FAERS Safety Report 8573935-6 (Version None)
Quarter: 2012Q3

REPORT INFORMATION
  Report Type: 
  Country: None (occurrence: None)
  Receive Date: 20120806
  Receipt Date: 20120731
  Transmission Date: 20120928
  Serious: Yes (Death)
  Sender: FDA-Public Use
  Company Number: US-CELGENEUS-163-21880-12080144

PATIENT
  Sex: Male

DRUGS (4)
  1. REVLIMID [Suspect]
     Indication: MULTIPLE MYELOMA
     Dosage: 15 MILLIGRAM
     Route: 048
     Dates: start: 20090401
  2. REVLIMID [Suspect]
     Dosage: 5-15MG
     Route: 048
     Dates: start: 20100201
  3. REVLIMID [Suspect]
     Dosage: 25 MILLIGRAM
     Route: 048
     Dates: start: 20110901
  4. REVLIMID [Suspect]
     Dosage: 25-15MG
     Route: 048
     Dates: start: 20110701

REACTIONS (1)
  - MULTIPLE MYELOMA [None]
